FAERS Safety Report 11982053 (Version 1)
Quarter: 2016Q1

REPORT INFORMATION
  Report Type: Spontaneous
  Country: US (occurrence: None)
  Receive Date: 20160129
  Receipt Date: 20160129
  Transmission Date: 20160526
  Serious: Yes (Other)
  Sender: FDA-Public Use
  Company Number: None

PATIENT
  Age: 26 Year
  Sex: Female

DRUGS (1)
  1. COPAXONE [Suspect]
     Active Substance: GLATIRAMER ACETATE
     Indication: MULTIPLE SCLEROSIS
     Dosage: DOSE FORM: INJECTABLE
     Route: 058
     Dates: start: 201507

REACTIONS (2)
  - Menstruation irregular [None]
  - Menorrhagia [None]

NARRATIVE: CASE EVENT DATE: 20160103
